FAERS Safety Report 5771629-3 (Version None)
Quarter: 2008Q2

REPORT INFORMATION
  Report Type: 
  Country: None (occurrence: None)
  Receive Date: 20080613
  Receipt Date: 20080602
  Transmission Date: 20081010
  Serious: Yes (Other)
  Sender: FDA-Public Use
  Company Number: EC-JNJFOC-20080602330

PATIENT
  Age: 48 Year
  Sex: Male

DRUGS (2)
  1. REMICADE [Suspect]
     Indication: PSORIASIS
     Dosage: 3 INFUSIONS IN LAST YEAR
     Route: 042
  2. CORTICOSTEROIDS [Concomitant]
     Indication: DERMATITIS ATOPIC

REACTIONS (2)
  - ARTHRALGIA [None]
  - DERMATITIS ATOPIC [None]
